FAERS Safety Report 5321746-7 (Version None)
Quarter: 2007Q2

REPORT INFORMATION
  Report Type: 
  Country: None (occurrence: None)
  Receive Date: 20070510
  Receipt Date: 20070503
  Transmission Date: 20071010
  Serious: Yes (Other)
  Sender: FDA-Public Use
  Company Number: US-PFIZER INC-2007036219

PATIENT
  Sex: Female
  Weight: 78.181 kg

DRUGS (2)
  1. CELEBREX [Suspect]
     Indication: ARTHRITIS
  2. THYROID TAB [Concomitant]

REACTIONS (3)
  - ANEURYSM [None]
  - BREAST COSMETIC SURGERY [None]
  - RASH [None]
